FAERS Safety Report 6427641-4 (Version None)
Quarter: 2009Q4

REPORT INFORMATION
  Report Type: 
  Country: None (occurrence: None)
  Receive Date: 20091104
  Receipt Date: 20091029
  Transmission Date: 20100525
  Serious: Yes (Death)
  Sender: FDA-Public Use
  Company Number: FR-GILEAD-2009-0025117

PATIENT
  Sex: Female

DRUGS (10)
  1. TRUVADA [Suspect]
     Indication: HIV INFECTION
     Route: 048
     Dates: end: 20090729
  2. INTELENCE [Concomitant]
     Indication: HIV INFECTION
     Route: 048
     Dates: end: 20090729
  3. TRIFLUCAN [Concomitant]
     Indication: MENINGITIS
     Route: 048
  4. MABTHERA [Concomitant]
     Indication: LYMPHOMA
     Route: 042
     Dates: start: 20090323, end: 20090710
  5. VINCRISTINE [Concomitant]
     Indication: LYMPHOMA
     Route: 042
     Dates: start: 20090323, end: 20090710
  6. DOXORUBICIN HCL [Concomitant]
     Indication: LYMPHOMA
     Route: 042
     Dates: start: 20090323, end: 20090710
  7. PREDNISONE TAB [Concomitant]
  8. CYCLOPHOSPHAMIDE [Concomitant]
  9. CANCIDAS [Concomitant]
     Dates: end: 20090716
  10. NEULASTA [Concomitant]

REACTIONS (2)
  - CARDIO-RESPIRATORY ARREST [None]
  - TORSADE DE POINTES [None]
